FAERS Safety Report 15542677 (Version 1)
Quarter: 2018Q4

REPORT INFORMATION
  Report Type: Spontaneous
  Country: US (occurrence: US)
  Receive Date: 20181023
  Receipt Date: 20181023
  Transmission Date: 20190205
  Serious: No
  Sender: FDA-Public Use
  Company Number: US-ABBVIE-18S-163-2446756-00

PATIENT
  Sex: Female

DRUGS (1)
  1. LUPRON [Suspect]
     Active Substance: LEUPROLIDE ACETATE
     Indication: ENDOMETRIOSIS
     Route: 065
     Dates: end: 2015

REACTIONS (8)
  - Mood swings [Unknown]
  - Disease recurrence [Not Recovered/Not Resolved]
  - Patient dissatisfaction with treatment [Unknown]
  - Thermal ablation [Unknown]
  - Bone loss [Unknown]
  - Hypertension [Unknown]
  - Depression [Unknown]
  - Hot flush [Unknown]
